FAERS Safety Report 4507393-5 (Version None)
Quarter: 2004Q4

REPORT INFORMATION
  Report Type: 
  Country: None (occurrence: None)
  Receive Date: 20041118
  Receipt Date: 20041105
  Transmission Date: 20050328
  Serious: Yes (Death, Other)
  Sender: FDA-Public Use
  Company Number: 2004070951

PATIENT
  Age: 25 Year
  Sex: 0

DRUGS (3)
  1. SERTRALINE HYDROCHLORIDE [Suspect]
     Indication: ILL-DEFINED DISORDER
  2. METHAMPHETAMINE HCL [Suspect]
     Indication: ILL-DEFINED DISORDER
  3. ARIPIPRAZOLE (ARIPIPRAZOLE) [Suspect]
     Indication: ILL-DEFINED DISORDER

REACTIONS (2)
  - CARDIO-RESPIRATORY ARREST [None]
  - MULTIPLE DRUG OVERDOSE [None]
